FAERS Safety Report 8255358-2 (Version None)
Quarter: 2012Q2

REPORT INFORMATION
  Report Type: 
  Country: None (occurrence: None)
  Receive Date: 20120403
  Receipt Date: 20120326
  Transmission Date: 20120825
  Serious: Yes (Life-Threatening, Hospitalization)
  Sender: FDA-Public Use
  Company Number: US-BAYER-2011-083344

PATIENT
  Age: 28 Year
  Sex: Female
  Weight: 56.689 kg

DRUGS (5)
  1. IBUPROFEN (ADVIL) [Concomitant]
     Indication: PAIN
  2. PREVACID [Concomitant]
     Dosage: 30 MG, UNK
     Route: 048
  3. ZITHROMAX [Concomitant]
  4. YASMIN [Suspect]
     Indication: CONTRACEPTION
     Dosage: UNK
     Route: 048
     Dates: start: 20061101, end: 20081001
  5. DROSPIRENONE AND ETHINYL ESTRADIOL [Suspect]
     Indication: CONTRACEPTION
     Dosage: UNK
     Route: 048
     Dates: start: 20081101, end: 20090601

REACTIONS (7)
  - INJURY [None]
  - ANHEDONIA [None]
  - PAIN [None]
  - THROMBOSIS [None]
  - FATIGUE [None]
  - ANXIETY [None]
  - DEEP VEIN THROMBOSIS [None]
